FAERS Safety Report 10592778 (Version 3)
Quarter: 2015Q1

REPORT INFORMATION
  Report Type: Spontaneous
  Country: FR (occurrence: FR)
  Receive Date: 20141119
  Receipt Date: 20150211
  Transmission Date: 20150720
  Serious: Yes (Hospitalization)
  Sender: FDA-Public Use
  Company Number: FR-PFIZER INC-2014313477

PATIENT
  Age: 79 Year
  Sex: Female

DRUGS (14)
  1. CORTANCYL [Concomitant]
     Active Substance: PREDNISONE
     Dosage: 5 MG, 1X/DAY
  2. EFFEXOR [Suspect]
     Active Substance: VENLAFAXINE HYDROCHLORIDE
     Dosage: 37.5 MG, 2X/DAY
     Route: 048
  3. IMODIUM [Concomitant]
     Active Substance: LOPERAMIDE HYDROCHLORIDE
     Dosage: 3 DF, DAILY
  4. METEOSPASMYL [Concomitant]
     Active Substance: ALVERINE CITRATE\DIMETHICONE
     Dosage: 3 DF, DAILY
  5. VESICARE [Concomitant]
     Active Substance: SOLIFENACIN SUCCINATE
     Dosage: 5 MG, 1X/DAY
  6. PANFUREX [Concomitant]
     Active Substance: NIFUROXAZIDE
     Dosage: 400 MG, 2X/DAY
     Dates: end: 20140629
  7. HEMIGOXINE [Concomitant]
     Active Substance: DIGOXIN
     Dosage: 1 DF, 1X/DAY
  8. PLAVIX [Interacting]
     Active Substance: CLOPIDOGREL BISULFATE
     Dosage: 75 MG, 1X/DAY
     Route: 048
  9. MOPRAL [Concomitant]
     Active Substance: OMEPRAZOLE SODIUM
     Dosage: 20 MG, 1X/DAY
  10. CRESTOR [Concomitant]
     Active Substance: ROSUVASTATIN CALCIUM
     Dosage: 5 MG, 1X/DAY
  11. SPASFON [Concomitant]
     Active Substance: PHLOROGLUCINOL
     Dosage: 3 DF, DAILY
  12. HAVLANE [Concomitant]
     Active Substance: LOPRAZOLAM
     Dosage: 1 DF, 1X/DAY
  13. DIFFU K [Concomitant]
     Active Substance: POTASSIUM CHLORIDE
     Dosage: 2 DF, 3X/DAY
  14. ACTONEL [Concomitant]
     Active Substance: RISEDRONATE SODIUM
     Dosage: 35 MG, WEEKLY

REACTIONS (5)
  - Loss of consciousness [Recovering/Resolving]
  - Drug interaction [Recovered/Resolved]
  - Cognitive disorder [Unknown]
  - Subdural haematoma [Recovered/Resolved]
  - Anaemia [Recovered/Resolved]

NARRATIVE: CASE EVENT DATE: 20140908
